FAERS Safety Report 9393359 (Version 2)
Quarter: 2013Q3

REPORT INFORMATION
  Report Type: Report from Study
  Country: FR (occurrence: FR)
  Receive Date: 20130710
  Receipt Date: 20130719
  Transmission Date: 20140515
  Serious: Yes (Hospitalization)
  Sender: FDA-Public Use
  Company Number: FR-ROCHE-1242623

PATIENT
  Age: 91 Year
  Sex: Male
  Weight: 84 kg

DRUGS (8)
  1. VISMODEGIB [Suspect]
     Indication: BASAL CELL CARCINOMA
     Dosage: DATE OF LAST DOSE PRIOR TO SAE: 21/JUN/2013
     Route: 048
     Dates: start: 20130529
  2. NOVONORM [Concomitant]
     Indication: DIABETES MELLITUS
     Route: 065
     Dates: start: 200701
  3. CRESTOR [Concomitant]
     Indication: DYSLIPIDAEMIA
     Route: 065
     Dates: start: 201211
  4. ZOXAN [Concomitant]
     Indication: BENIGN PROSTATIC HYPERPLASIA
  5. AVODART [Concomitant]
     Indication: BENIGN PROSTATIC HYPERPLASIA
     Route: 065
     Dates: start: 200701
  6. STILNOX [Concomitant]
     Indication: INSOMNIA
     Route: 065
     Dates: start: 200701
  7. INEXIUM [Concomitant]
  8. AMLOR [Concomitant]
     Indication: HYPERTENSION
     Route: 065
     Dates: start: 201201

REACTIONS (1)
  - Loss of consciousness [Recovered/Resolved]
